FAERS Safety Report 14514760 (Version 1)
Quarter: 2018Q1

REPORT INFORMATION
  Report Type: Spontaneous
  Country: US (occurrence: US)
  Receive Date: 20180209
  Receipt Date: 20180209
  Transmission Date: 20180509
  Serious: No
  Sender: FDA-Public Use
  Company Number: US-009507513-1801USA007240

PATIENT
  Age: 47 Year
  Sex: Male

DRUGS (5)
  1. EVEROLIMUS. [Concomitant]
     Active Substance: EVEROLIMUS
  2. OCTREOTIDE. [Concomitant]
     Active Substance: OCTREOTIDE
     Indication: FLUSHING
  3. OCTREOTIDE. [Concomitant]
     Active Substance: OCTREOTIDE
     Indication: HYPERHIDROSIS
  4. TEMODAR [Suspect]
     Active Substance: TEMOZOLOMIDE
     Indication: PARAGANGLION NEOPLASM MALIGNANT
     Dosage: 15 MONTHS
  5. IOBENGUANE I 123 [Concomitant]
     Dosage: UNK

REACTIONS (1)
  - Product use in unapproved indication [Unknown]
